FAERS Safety Report 19305278 (Version 1)
Quarter: 2021Q2

REPORT INFORMATION
  Report Type: Spontaneous
  Country: DE (occurrence: DE)
  Receive Date: 20210526
  Receipt Date: 20210526
  Transmission Date: 20210717
  Serious: Yes (Life-Threatening, Hospitalization, Other)
  Sender: FDA-Public Use
  Company Number: DE-BIOVITRUM-2021DE4689

PATIENT
  Sex: Male
  Weight: 2 kg

DRUGS (1)
  1. KINERET [Suspect]
     Active Substance: ANAKINRA
     Indication: FAMILIAL MEDITERRANEAN FEVER
     Route: 064

REACTIONS (3)
  - Premature baby [Unknown]
  - Neonatal respiratory failure [Recovered/Resolved]
  - Foetal exposure during pregnancy [Unknown]
